FAERS Safety Report 23404824 (Version 1)
Quarter: 2024Q1

REPORT INFORMATION
  Report Type: Spontaneous
  Country: US (occurrence: None)
  Receive Date: 20240112
  Receipt Date: 20240112
  Transmission Date: 20240410
  Serious: Yes (Life-Threatening, Hospitalization, Disabling)
  Sender: FDA-Public Use
  Company Number: None

PATIENT
  Age: 64 Year
  Sex: Female
  Weight: 55 kg

DRUGS (7)
  1. TIRZEPATIDE [Suspect]
     Active Substance: TIRZEPATIDE
     Indication: Obesity
  2. cyanocobalamin monthly injections [Concomitant]
  3. fluoxetine 20mg daily [Concomitant]
  4. levothyroxine 75 mcg daily [Concomitant]
  5. lifitegrast 5% eye drops [Concomitant]
  6. montelukast 10mg daily [Concomitant]
  7. rosuvastatin 5mg daily [Concomitant]

REACTIONS (5)
  - Overdose [None]
  - Stab wound [None]
  - Abdominal injury [None]
  - Skin laceration [None]
  - Intentional self-injury [None]

NARRATIVE: CASE EVENT DATE: 20240110
